FAERS Safety Report 12127047 (Version 1)
Quarter: 2016Q1

REPORT INFORMATION
  Report Type: Spontaneous
  Country: KP (occurrence: KR)
  Receive Date: 20160229
  Receipt Date: 20160229
  Transmission Date: 20160526
  Serious: Yes (Hospitalization)
  Sender: FDA-Public Use
  Company Number: KP-VALIDUS PHARMACEUTICALS LLC-KR-2016VAL000210

PATIENT
  Age: 63 Year
  Sex: Male

DRUGS (15)
  1. METHYLPHENIDATE. [Suspect]
     Active Substance: METHYLPHENIDATE
     Dosage: 5 MG, QD AFTER THE EVENT
  2. BROMOCRIPTINE MESYLATE [Suspect]
     Active Substance: BROMOCRIPTINE MESYLATE
     Indication: DEPRESSED LEVEL OF CONSCIOUSNESS
     Dosage: 2.5 MG, UNK
  3. ROPINIROLE. [Suspect]
     Active Substance: ROPINIROLE
     Dosage: 0.75 MG, QD ON 13 DAY OF ADMISSION
  4. ROPINIROLE. [Suspect]
     Active Substance: ROPINIROLE
     Dosage: 0.5 MG, QD (AFTER THE EVENT)
  5. METHYLPHENIDATE. [Suspect]
     Active Substance: METHYLPHENIDATE
     Indication: DEPRESSED LEVEL OF CONSCIOUSNESS
     Dosage: 20 MG, UNK
  6. CARBIDOPA AND LEVODOPA [Suspect]
     Active Substance: CARBIDOPA\LEVODOPA
     Dosage: UNK
  7. AMANTADINE [Suspect]
     Active Substance: AMANTADINE
     Indication: DEPRESSED LEVEL OF CONSCIOUSNESS
     Dosage: 300 MG, UNK
  8. CARBIDOPA AND LEVODOPA [Suspect]
     Active Substance: CARBIDOPA\LEVODOPA
     Dosage: UNK
  9. ROPINIROLE. [Suspect]
     Active Substance: ROPINIROLE
     Dosage: 0.625 MG, UNK
  10. AMANTADINE [Suspect]
     Active Substance: AMANTADINE
     Dosage: 200 MG, QD AFTER THE EVENT OCCURED
  11. TIANEPTINE SODIUM [Suspect]
     Active Substance: TIANEPTINE SODIUM
     Indication: DEPRESSED LEVEL OF CONSCIOUSNESS
     Dosage: 37.5 MG, UNK
  12. DONEPEZIL. [Suspect]
     Active Substance: DONEPEZIL
     Indication: DEPRESSED LEVEL OF CONSCIOUSNESS
     Dosage: 5 MG, UNK
  13. CARBIDOPA AND LEVODOPA [Suspect]
     Active Substance: CARBIDOPA\LEVODOPA
     Indication: DEPRESSED LEVEL OF CONSCIOUSNESS
     Dosage: UNK
  14. ROPINIROLE. [Suspect]
     Active Substance: ROPINIROLE
     Indication: DEPRESSED LEVEL OF CONSCIOUSNESS
     Dosage: 0.25 MG, QD
  15. VENLAFAXINE [Suspect]
     Active Substance: VENLAFAXINE HYDROCHLORIDE
     Indication: DEPRESSED LEVEL OF CONSCIOUSNESS
     Dosage: 37.5 MG, UNK

REACTIONS (1)
  - Serotonin syndrome [Recovered/Resolved]
